FAERS Safety Report 7475382-7 (Version None)
Quarter: 2011Q2

REPORT INFORMATION
  Report Type: 
  Country: None (occurrence: None)
  Receive Date: 20110512
  Receipt Date: 20110422
  Transmission Date: 20111010
  Serious: No
  Sender: FDA-Public Use
  Company Number: US-B.I. PHARMACEUTICALS,INC./RIDGEFIELD-2011-BP-05777BP

PATIENT
  Age: 72 Year
  Sex: Male

DRUGS (3)
  1. MURINE [Concomitant]
     Indication: DRY EYE
  2. MEDICATION NOT FURTHER SPECIFIED [Concomitant]
     Indication: HYPERTENSION
  3. SPIRIVA [Suspect]
     Indication: EMPHYSEMA
     Dosage: 18 MCG
     Route: 055
     Dates: start: 20100201

REACTIONS (2)
  - DRUG INEFFECTIVE [None]
  - WHEEZING [None]
